FAERS Safety Report 8535421-9 (Version None)
Quarter: 2012Q3

REPORT INFORMATION
  Report Type: 
  Country: None (occurrence: None)
  Receive Date: 20120725
  Receipt Date: 20120712
  Transmission Date: 20120928
  Serious: No
  Sender: FDA-Public Use
  Company Number: US-B.I. PHARMACEUTICALS,INC./RIDGEFIELD-2012-BP-15578BP

PATIENT
  Sex: Male

DRUGS (4)
  1. ASPIRIN [Concomitant]
     Dosage: 81 MG
     Route: 048
     Dates: start: 19940101
  2. MICARDIS [Suspect]
     Indication: BLOOD PRESSURE ABNORMAL
     Dosage: 40 MG
     Route: 048
     Dates: start: 20120101
  3. LIPITOR [Concomitant]
     Indication: BLOOD CHOLESTEROL
     Dosage: 10 MG
     Route: 048
     Dates: start: 20120101
  4. NEXIUM [Concomitant]
     Indication: HIATUS HERNIA
     Dosage: 40 MG
     Route: 048
     Dates: start: 19920101

REACTIONS (1)
  - WEIGHT INCREASED [None]
